FAERS Safety Report 10718144 (Version 3)
Quarter: 2015Q1

REPORT INFORMATION
  Report Type: Report from Study
  Country: AU (occurrence: AU)
  Receive Date: 20150117
  Receipt Date: 20150209
  Transmission Date: 20150721
  Serious: Yes (Hospitalization)
  Sender: FDA-Public Use
  Company Number: PHHY2015AU005154

PATIENT
  Sex: Female

DRUGS (1)
  1. CLOZARIL [Suspect]
     Active Substance: CLOZAPINE
     Indication: SCHIZOPHRENIA
     Dosage: 12.5 (UNIT UNSPECIFIED)
     Route: 048
     Dates: start: 20121126

REACTIONS (4)
  - Aggression [Unknown]
  - Agitation [Unknown]
  - Malaise [Unknown]
  - Wrong drug administered [Unknown]
